FAERS Safety Report 5027754-8 (Version None)
Quarter: 2006Q2

REPORT INFORMATION
  Report Type: 
  Country: None (occurrence: None)
  Receive Date: 20060609
  Receipt Date: 20060529
  Transmission Date: 20061013
  Serious: Yes (Hospitalization)
  Sender: FDA-Public Use
  Company Number: 2006053413

PATIENT
  Age: 52 Year
  Sex: Female
  Weight: 53 kg

DRUGS (7)
  1. RELPAX [Suspect]
     Indication: MIGRAINE
     Dosage: 40 MG, ORAL
     Route: 048
     Dates: start: 20060120, end: 20060330
  2. CYPROTERONE [Concomitant]
  3. CLIMENE (CYPROTERONE ACETATE, ESTRADIOL VALERATE) [Concomitant]
  4. ALL OTHER THERAPEUTIC PRODUCTS [Concomitant]
  5. FIXICAL VITAMINE D3            ( CALCIUM CARBONATE, COLECALCIFEROL) [Concomitant]
  6. FENOFIBRATE [Concomitant]
  7. FEXOFENADINE HCL [Concomitant]

REACTIONS (1)
  - COLITIS ISCHAEMIC [None]
